FAERS Safety Report 15995225 (Version 1)
Quarter: 2019Q1

REPORT INFORMATION
  Report Type: Spontaneous
  Country: US (occurrence: US)
  Receive Date: 20190129
  Receipt Date: 20190129
  Transmission Date: 20190418
  Serious: Yes (Other)
  Sender: FDA-Public Use
  Company Number: None

PATIENT

DRUGS (2)
  1. MYRBETRIQ [Suspect]
     Active Substance: MIRABEGRON
     Indication: PENILE PAIN
     Dosage: ?          QUANTITY:25 MG MILLIGRAM(S);?
     Route: 048
     Dates: start: 20190110, end: 20190115
  2. MYRBETRIQ [Suspect]
     Active Substance: MIRABEGRON
     Indication: ABDOMINAL PAIN UPPER
     Dosage: ?          QUANTITY:25 MG MILLIGRAM(S);?
     Route: 048
     Dates: start: 20190110, end: 20190115

REACTIONS (5)
  - Eye pain [None]
  - Abdominal pain upper [None]
  - Dysuria [None]
  - Haemorrhage [None]
  - Post herpetic neuralgia [None]

NARRATIVE: CASE EVENT DATE: 20190115
